FAERS Safety Report 24162938 (Version 4)
Quarter: 2025Q2

REPORT INFORMATION
  Report Type: Spontaneous
  Country: US (occurrence: US)
  Receive Date: 20240801
  Receipt Date: 20250511
  Transmission Date: 20250716
  Serious: Yes (Hospitalization)
  Sender: SANOFI AVENTIS
  Company Number: US-SA-SAC20240729001212

PATIENT
  Age: 77 Year
  Sex: Female
  Weight: 79.55 kg

DRUGS (22)
  1. DUPIXENT [Suspect]
     Active Substance: DUPILUMAB
     Indication: Asthma
     Dosage: 300 MG, QOW
     Route: 058
     Dates: start: 20240612, end: 20250423
  2. DUPIXENT [Suspect]
     Active Substance: DUPILUMAB
     Indication: Chronic obstructive pulmonary disease
  3. MYRBETRIQ [Concomitant]
     Active Substance: MIRABEGRON
  4. TAMSULOSIN HYDROCHLORIDE [Concomitant]
     Active Substance: TAMSULOSIN HYDROCHLORIDE
  5. TRELEGY ELLIPTA [Concomitant]
     Active Substance: FLUTICASONE FUROATE\UMECLIDINIUM BROMIDE\VILANTEROL TRIFENATATE
  6. TRAZODONE HCL [Concomitant]
     Active Substance: TRAZODONE HYDROCHLORIDE
  7. PREGABALIN [Concomitant]
     Active Substance: PREGABALIN
  8. OMEPRAZOLE [Concomitant]
     Active Substance: OMEPRAZOLE
  9. MIRALAX [Concomitant]
     Active Substance: POLYETHYLENE GLYCOL 3350
  10. LURASIDONE HYDROCHLORIDE [Concomitant]
     Active Substance: LURASIDONE HYDROCHLORIDE
  11. VITAMINS NOS [Concomitant]
     Active Substance: VITAMINS
  12. IRON [Concomitant]
     Active Substance: IRON
  13. FLUTICASONE PROPIONATE [Concomitant]
     Active Substance: FLUTICASONE PROPIONATE
  14. DULOXETINE HYDROCHLORIDE [Concomitant]
     Active Substance: DULOXETINE HYDROCHLORIDE
  15. ALENDRONATE SODIUM [Concomitant]
     Active Substance: ALENDRONATE SODIUM
  16. OXYCODONE AND ACETAMINOPHEN [Concomitant]
     Active Substance: ACETAMINOPHEN\OXYCODONE HYDROCHLORIDE
  17. CYANOCOBALAMIN\DEXPANTHENOL\NIACINAMIDE\PYRIDOXINE HYDROCHLORIDE\RIBOF [Concomitant]
     Active Substance: CYANOCOBALAMIN\DEXPANTHENOL\NIACINAMIDE\PYRIDOXINE HYDROCHLORIDE\RIBOFLAVIN 5^-PHOSPHATE SODIUM\THIA
  18. VITAMIN C [Concomitant]
     Active Substance: ASCORBIC ACID
  19. DOXYCYCLINE HYCLATE [Concomitant]
     Active Substance: DOXYCYCLINE HYCLATE
  20. FLUARIX NOS [Concomitant]
     Active Substance: INFLUENZA VIRUS VACCINE
  21. SPIKEVAX [Concomitant]
     Active Substance: CX-046684
  22. FERROUS SULFATE [Concomitant]
     Active Substance: FERROUS SULFATE

REACTIONS (11)
  - Chronic obstructive pulmonary disease [Unknown]
  - Pain [Recovering/Resolving]
  - Tinea infection [Unknown]
  - Lip swelling [Recovering/Resolving]
  - Hypoaesthesia oral [Recovering/Resolving]
  - Hypoaesthesia [Recovering/Resolving]
  - Exposure to fungus [Unknown]
  - Oxygen saturation decreased [Unknown]
  - Injection site swelling [Unknown]
  - Injection site erythema [Unknown]
  - Hypersensitivity [Recovering/Resolving]

NARRATIVE: CASE EVENT DATE: 20240701
